FAERS Safety Report 15251015 (Version 1)
Quarter: 2018Q3

REPORT INFORMATION
  Report Type: Report from Study
  Country: CR (occurrence: CR)
  Receive Date: 20180807
  Receipt Date: 20180807
  Transmission Date: 20181010
  Serious: Yes (Other)
  Sender: FDA-Public Use
  Company Number: PHHY2018CR066640

PATIENT
  Age: 70 Year
  Sex: Female

DRUGS (1)
  1. EXFORGE [Suspect]
     Active Substance: AMLODIPINE BESYLATE\VALSARTAN
     Indication: HYPERTENSION
     Dosage: (AMLODIPINE 5 MG, VALSARTAN 320 MG)/(AMLODIPINE 5 MG, VALSARTAN 160 MG)
     Route: 065

REACTIONS (1)
  - General physical health deterioration [Unknown]
